FAERS Safety Report 6150361-0 (Version None)
Quarter: 2009Q2

REPORT INFORMATION
  Report Type: 
  Country: None (occurrence: None)
  Receive Date: 20090407
  Receipt Date: 20090406
  Transmission Date: 20091009
  Serious: Yes (Hospitalization)
  Sender: FDA-Public Use
  Company Number: GXKR2009DE04193

PATIENT
  Age: 77 Year
  Sex: Female
  Weight: 88 kg

DRUGS (9)
  1. BISOPROLOL FUMARATE [Suspect]
     Indication: TACHYARRHYTHMIA
     Dosage: 5 MG, QD, ORAL
     Route: 048
     Dates: start: 20080101
  2. FALITHROM (NGX) (PHENOPROCOUMON) FILM-COATED TABLET [Suspect]
     Indication: PULMONARY EMBOLISM
     Dosage: 5X1.5MG AND 2X3MG/WEEKLY, ORAL
     Route: 048
     Dates: start: 20080101
  3. ENOXAPARIN SODIUM [Suspect]
     Indication: PULMONARY EMBOLISM
     Dosage: 80 MG, QD, SUBCUTANEOUS
     Route: 058
     Dates: start: 20080101, end: 20080414
  4. DIGITOXIN INJ [Suspect]
     Indication: TACHYARRHYTHMIA
     Dosage: 0.07 MG, ORAL
     Route: 048
     Dates: start: 20080101
  5. FOTIL (PILOCARPINE HYDROCHLORIDE, TIMOLOL MALEATE) [Concomitant]
  6. FUROSEMIDE [Concomitant]
  7. OMEP (OMEPRAZOLE) [Concomitant]
  8. PENTAERYTHIRITOL TETRANITRATE TAB [Concomitant]
  9. RAMIPRIL [Concomitant]

REACTIONS (2)
  - ABDOMINAL WALL HAEMATOMA [None]
  - BRADYCARDIA [None]
